FAERS Safety Report 8031436-8 (Version None)
Quarter: 2011Q4

REPORT INFORMATION
  Report Type: 
  Country: None (occurrence: None)
  Receive Date: 20111202
  Receipt Date: 20091202
  Transmission Date: 20120403
  Serious: Yes (Hospitalization, Other)
  Sender: FDA-Public Use
  Company Number: 2009-189323-NL

PATIENT
  Age: 35 Year
  Sex: Female
  Weight: 30.8446 kg

DRUGS (20)
  1. ATARAX [Concomitant]
  2. GUAIFENESIN DM [Concomitant]
  3. LORATADINE [Concomitant]
  4. TRAZODONE HCL [Concomitant]
  5. TRIAMCINOLONE [Concomitant]
  6. VALIUM [Concomitant]
  7. DARVOCET [Concomitant]
  8. KEFLEX [Concomitant]
  9. PROVERA [Concomitant]
  10. NUVARING [Suspect]
     Indication: CONTRACEPTION
     Dates: start: 20041201, end: 20050101
  11. NUVARING [Suspect]
     Indication: CONTRACEPTION
     Dates: end: 20060301
  12. FLEXERIL [Concomitant]
  13. NADOL [Concomitant]
  14. CLOBETASOL PROPIONATE [Concomitant]
  15. ESCITALPRAM OXALATE [Concomitant]
  16. ULTRAVATE [Concomitant]
  17. LEXAPRO [Concomitant]
  18. FLUTICASONE PROPIONATE [Concomitant]
  19. HYDROXYZINE HCL [Concomitant]
  20. SINGULAIR [Concomitant]

REACTIONS (9)
  - INSOMNIA [None]
  - PULMONARY EMBOLISM [None]
  - DRY EYE [None]
  - CHEST PAIN [None]
  - AMENORRHOEA [None]
  - PULMONARY INFARCTION [None]
  - GALACTORRHOEA [None]
  - BREAST MASS [None]
  - LIGAMENT SPRAIN [None]
